FAERS Safety Report 5388349-X (Version None)
Quarter: 2007Q3

REPORT INFORMATION
  Report Type: 
  Country: None (occurrence: None)
  Receive Date: 20070716
  Receipt Date: 20070704
  Transmission Date: 20080115
  Serious: Yes (Life-Threatening)
  Sender: FDA-Public Use
  Company Number: JP-ROCHE-489724

PATIENT
  Age: 17 Year
  Sex: Male

DRUGS (2)
  1. TAMIFLU [Suspect]
     Route: 048
     Dates: start: 20070320, end: 20070320
  2. ZYRTEC [Concomitant]
     Dosage: GENERIC REPORTED AS CETRIZINE HYDROCHLORIDE.
     Route: 048
     Dates: start: 20070320, end: 20070320

REACTIONS (3)
  - ABNORMAL BEHAVIOUR [None]
  - SUICIDE ATTEMPT [None]
  - TONGUE PARALYSIS [None]
